FAERS Safety Report 19837166 (Version 1)
Quarter: 2021Q3

REPORT INFORMATION
  Report Type: Other
  Country: JP (occurrence: JP)
  Receive Date: 20210916
  Receipt Date: 20210916
  Transmission Date: 20211014
  Serious: Yes (Hospitalization, Other)
  Sender: FDA-Public Use
  Company Number: JP-PHARMGEN-000013

PATIENT
  Age: 15 Year
  Sex: Male

DRUGS (1)
  1. LISINOPRIL. [Suspect]
     Active Substance: LISINOPRIL
     Indication: HYPERTENSION
     Route: 048

REACTIONS (5)
  - Hypertension [Recovered/Resolved]
  - Glomerulonephritis acute [Not Recovered/Not Resolved]
  - Drug ineffective [Unknown]
  - Disease progression [Not Recovered/Not Resolved]
  - End stage renal disease [Not Recovered/Not Resolved]
